FAERS Safety Report 11482712 (Version 2)
Quarter: 2015Q3

REPORT INFORMATION
  Report Type: Spontaneous
  Country: US (occurrence: US)
  Receive Date: 20150903
  Receipt Date: 20150903
  Transmission Date: 20151125
  Serious: No
  Sender: FDA-Public Use
  Company Number: US-ELI_LILLY_AND_COMPANY-US201204008536

PATIENT
  Age: 56 Year

DRUGS (1)
  1. CYMBALTA [Suspect]
     Active Substance: DULOXETINE HYDROCHLORIDE
     Indication: FIBROMYALGIA
     Dosage: UNK UNK, UNKNOWN
     Dates: start: 201202, end: 201203

REACTIONS (3)
  - Dyspepsia [Unknown]
  - Adverse drug reaction [Unknown]
  - Abdominal distension [Unknown]

NARRATIVE: CASE EVENT DATE: 20120318
